FAERS Safety Report 18311352 (Version 1)
Quarter: 2020Q3

REPORT INFORMATION
  Report Type: Spontaneous
  Country: US (occurrence: US)
  Receive Date: 20200924
  Receipt Date: 20200924
  Transmission Date: 20201103
  Serious: Yes (Hospitalization)
  Sender: FDA-Public Use
  Company Number: None

PATIENT
  Age: 86 Year
  Sex: Male

DRUGS (1)
  1. APIXABAN (APIXABAN 5MG TAB) [Suspect]
     Active Substance: APIXABAN
     Route: 048
     Dates: start: 20180430, end: 20180507

REACTIONS (4)
  - Cardiac failure congestive [None]
  - Condition aggravated [None]
  - Deep vein thrombosis [None]
  - Therapy non-responder [None]

NARRATIVE: CASE EVENT DATE: 20190301
